FAERS Safety Report 8735905 (Version 2)
Quarter: 2012Q4

REPORT INFORMATION
  Report Type: 
  Country: FR (occurrence: FR)
  Receive Date: 20120822
  Receipt Date: 20121015
  Transmission Date: 20130627
  Serious: Yes (Hospitalization, Other)
  Sender: FDA-Public Use
  Company Number: FR-PFIZER INC-2012200836

PATIENT
  Age: 73 Year
  Sex: Male
  Weight: 88 kg

DRUGS (10)
  1. SUTENT [Suspect]
     Indication: RENAL CANCER METASTATIC
     Dosage: 50 mg, cyclic, daily
     Dates: start: 201207, end: 20120810
  2. INNOHEP [Concomitant]
     Dosage: 1 DF, injection, 1x/day
     Route: 058
  3. SPIRIVA [Concomitant]
     Dosage: 1 DF, 1x/day
  4. INEXIUM [Concomitant]
     Dosage: 1 DF, 1x/day, in evening
  5. CRESTOR [Concomitant]
     Dosage: 1 DF, 1x/day, in evening
  6. OXEOL [Concomitant]
     Dosage: 1 DF, 1x/day, in morning
  7. FLECAINE [Concomitant]
     Dosage: 1 DF, 1x/day, in morning
  8. OXYCONTIN [Concomitant]
     Dosage: 1 DF, 2x/day, in morning and in evening
  9. OXYNORM [Concomitant]
     Dosage: 10 mg, in interdoses
  10. DOLIPRANE [Concomitant]
     Indication: PAIN
     Dosage: UNK, as needed

REACTIONS (7)
  - Rectal haemorrhage [Unknown]
  - Colitis ischaemic [Unknown]
  - Mucosal inflammation [Recovered/Resolved]
  - Diarrhoea [Recovered/Resolved]
  - Intestinal ulcer [Unknown]
  - Lung disorder [Unknown]
  - Thrombocytopenia [Unknown]
